FAERS Safety Report 25730727 (Version 1)
Quarter: 2025Q3

REPORT INFORMATION
  Report Type: Spontaneous
  Country: US (occurrence: None)
  Receive Date: 20250827
  Receipt Date: 20250827
  Transmission Date: 20251021
  Serious: Yes (Death)
  Sender: FDA-CTU
  Company Number: None

PATIENT
  Age: 77 Year
  Sex: Male
  Weight: 66 kg

DRUGS (1)
  1. AMIODARONE HYDROCHLORIDE [Suspect]
     Active Substance: AMIODARONE HYDROCHLORIDE

REACTIONS (13)
  - Bronchiectasis [None]
  - Pulmonary fibrosis [None]
  - Pulmonary toxicity [None]
  - Acute respiratory failure [None]
  - Pneumonia [None]
  - Acute respiratory distress syndrome [None]
  - Atrial fibrillation [None]
  - Stenotrophomonas infection [None]
  - Aspartate aminotransferase increased [None]
  - Alanine aminotransferase increased [None]
  - Blood alkaline phosphatase increased [None]
  - Flatulence [None]
  - Treatment noncompliance [None]

NARRATIVE: CASE EVENT DATE: 20250505
